FAERS Safety Report 7475195-6 (Version None)
Quarter: 2011Q2

REPORT INFORMATION
  Report Type: 
  Country: None (occurrence: None)
  Receive Date: 20110505
  Receipt Date: 20110214
  Transmission Date: 20111010
  Serious: Yes (Death)
  Sender: FDA-Public Use
  Company Number: JP-ACCORD-008175

PATIENT
  Age: 48 Year
  Sex: Female

DRUGS (7)
  1. VINCRISTINE [Suspect]
     Indication: CHEMOTHERAPY
  2. ETOPOSIDE [Suspect]
     Indication: CHEMOTHERAPY
     Dosage: 300.00 MG/M2
  3. CYCLOPHOSPHAMIDE [Suspect]
     Indication: CHEMOTHERAPY
  4. PREDNISOLONE [Suspect]
     Indication: CHEMOTHERAPY
  5. DOXORUBICIN HCL [Suspect]
     Indication: CHEMOTHERAPY
  6. IFOSFAMIDE [Suspect]
     Indication: CHEMOTHERAPY
  7. CARBOPLATIN [Suspect]
     Indication: CHEMOTHERAPY
     Dosage: 400.00 MG/M2

REACTIONS (6)
  - METASTASES TO BONE MARROW [None]
  - ANGIOSARCOMA [None]
  - RESPIRATORY FAILURE [None]
  - METASTASES TO BONE [None]
  - RECURRENT CANCER [None]
  - METASTASES TO LUNG [None]
